FAERS Safety Report 10178661 (Version 1)
Quarter: 2014Q2

REPORT INFORMATION
  Report Type: Spontaneous
  Country: US (occurrence: None)
  Receive Date: 20140516
  Receipt Date: 20140516
  Transmission Date: 20141212
  Serious: Yes (Life-Threatening, Disabling)
  Sender: FDA-Public Use
  Company Number: None

PATIENT
  Age: 58 Year
  Sex: Male
  Weight: 92.08 kg

DRUGS (5)
  1. LISINOPRIL [Suspect]
     Indication: HYPERTENSION
     Dosage: 20 MG, PILLS 1, 1, MOUTH
     Route: 048
     Dates: start: 20131108, end: 20131128
  2. MEDFORMEN 500 MG [Concomitant]
  3. ZOCAR 20 MG [Concomitant]
  4. ASPRIN BABY 80 MG [Concomitant]
  5. FISH OIL [Concomitant]

REACTIONS (5)
  - Pain in extremity [None]
  - Pain in extremity [None]
  - Abasia [None]
  - Dysstasia [None]
  - Drug intolerance [None]
